FAERS Safety Report 6327589-X (Version None)
Quarter: 2009Q3

REPORT INFORMATION
  Report Type: 
  Country: None (occurrence: None)
  Receive Date: 20090825
  Receipt Date: 20090817
  Transmission Date: 20100115
  Serious: Yes (Hospitalization)
  Sender: FDA-Public Use
  Company Number: AU-GENENTECH-288372

PATIENT
  Sex: Male

DRUGS (2)
  1. BEVACIZUMAB [Suspect]
     Indication: COLON CANCER
     Dosage: 600 MG, Q3W
     Route: 042
     Dates: start: 20080812
  2. CAPECITABINE [Suspect]
     Indication: COLON CANCER
     Dosage: 2.25 G, BID
     Route: 048
     Dates: start: 20080812

REACTIONS (1)
  - PERICARDITIS [None]
